FAERS Safety Report 8521700-8 (Version None)
Quarter: 2012Q3

REPORT INFORMATION
  Report Type: 
  Country: None (occurrence: None)
  Receive Date: 20120719
  Receipt Date: 20120717
  Transmission Date: 20120928
  Serious: Yes (Other)
  Sender: FDA-Public Use
  Company Number: PHFR2012GB004021

PATIENT
  Age: 66 Year
  Sex: Male
  Weight: 88.4 kg

DRUGS (7)
  1. PRASUGREL [Concomitant]
  2. BISOPROLOL FUMARATE [Concomitant]
  3. RANITIDINE [Concomitant]
  4. NILOTINIB [Suspect]
     Indication: CHRONIC MYELOID LEUKAEMIA
     Dosage: UNK
     Route: 048
     Dates: start: 20110319, end: 20120601
  5. ASPIRIN [Concomitant]
  6. ACETAMINOPHEN [Concomitant]
  7. ATORVASTATIN [Concomitant]

REACTIONS (1)
  - PERIPHERAL ARTERIAL OCCLUSIVE DISEASE [None]
